FAERS Safety Report 6835434-9 (Version None)
Quarter: 2010Q3

REPORT INFORMATION
  Report Type: 
  Country: None (occurrence: None)
  Receive Date: 20100713
  Receipt Date: 20100625
  Transmission Date: 20110219
  Serious: No
  Sender: FDA-Public Use
  Company Number: US-B.I. PHARMACEUTICALS,INC./RIDGEFIELD-2010-BP-07229BP

PATIENT
  Age: 81 Year
  Sex: Male

DRUGS (4)
  1. CATAPRES-TTS-1 [Suspect]
     Indication: HYPERTENSION
     Dosage: 0.2 MG
     Route: 061
     Dates: start: 20100608
  2. GENERIC HYDROCODONE [Concomitant]
     Indication: NAUSEA
  3. TRAVATAN [Concomitant]
     Indication: GLAUCOMA
  4. ASPIRIN [Concomitant]

REACTIONS (2)
  - BLOOD PRESSURE INCREASED [None]
  - EYE IRRITATION [None]
